FAERS Safety Report 16618437 (Version 1)
Quarter: 2019Q3

REPORT INFORMATION
  Report Type: Spontaneous
  Country: IT (occurrence: IT)
  Receive Date: 20190723
  Receipt Date: 20190723
  Transmission Date: 20191004
  Serious: Yes (Hospitalization)
  Sender: FDA-Public Use
  Company Number: IT-MYLANLABS-2019M1069083

PATIENT
  Age: 91 Year
  Sex: Male

DRUGS (1)
  1. ZOLPIDEM [Suspect]
     Active Substance: ZOLPIDEM TARTRATE
     Indication: PRODUCT USED FOR UNKNOWN INDICATION
     Dosage: 15 DOSAGE FORM, TOTAL
     Route: 048
     Dates: start: 20180426, end: 20180426

REACTIONS (2)
  - Drug abuse [Unknown]
  - Coma [Unknown]

NARRATIVE: CASE EVENT DATE: 20180426
